FAERS Safety Report 23307168 (Version 1)
Quarter: 2023Q4

REPORT INFORMATION
  Report Type: Spontaneous
  Country: US (occurrence: US)
  Receive Date: 20231218
  Receipt Date: 20231218
  Transmission Date: 20240110
  Serious: Yes (Hospitalization, Other)
  Sender: FDA-Public Use
  Company Number: US-NOVAST LABORATORIES INC.-2023NOV000342

PATIENT

DRUGS (2)
  1. MEXILETINE [Suspect]
     Active Substance: MEXILETINE
     Indication: Myotonic dystrophy
     Dosage: UNK, BID
     Route: 065
     Dates: start: 20231127
  2. GABAPENTIN [Concomitant]
     Active Substance: GABAPENTIN
     Indication: Myotonic dystrophy
     Dosage: UNK
     Route: 065

REACTIONS (11)
  - Toxicity to various agents [Not Recovered/Not Resolved]
  - Hypoaesthesia oral [Not Recovered/Not Resolved]
  - Dysgeusia [Not Recovered/Not Resolved]
  - Feeling cold [Not Recovered/Not Resolved]
  - Tremor [Not Recovered/Not Resolved]
  - Seizure [Not Recovered/Not Resolved]
  - Dyspepsia [Not Recovered/Not Resolved]
  - Nausea [Not Recovered/Not Resolved]
  - Dizziness [Not Recovered/Not Resolved]
  - Headache [Not Recovered/Not Resolved]
  - Product use in unapproved indication [Unknown]
